FAERS Safety Report 5614883-0 (Version None)
Quarter: 2008Q1

REPORT INFORMATION
  Report Type: 
  Country: None (occurrence: None)
  Receive Date: 20080131
  Receipt Date: 20080118
  Transmission Date: 20080703
  Serious: Yes (Hospitalization)
  Sender: FDA-Public Use
  Company Number: 2008VX000192

PATIENT
  Age: 81 Year
  Sex: Female

DRUGS (5)
  1. PERMAX [Suspect]
     Indication: PARKINSON'S DISEASE
     Dosage: 750 UG;QD;PO
     Route: 048
     Dates: end: 20071113
  2. SELEGILINE HYDROCHLORIDE [Suspect]
     Dates: end: 20071113
  3. AMANTADINE HCL [Suspect]
     Dates: end: 20071113
  4. CLONAZEPAM [Suspect]
  5. LEVODOPA BENSERAZIDE HYDROCHLO (MADOPAR) [Suspect]
     Dates: end: 20071113

REACTIONS (1)
  - INTERSTITIAL LUNG DISEASE [None]
